FAERS Safety Report 18451938 (Version 1)
Quarter: 2020Q4

REPORT INFORMATION
  Report Type: Spontaneous
  Country: US (occurrence: US)
  Receive Date: 20201030
  Receipt Date: 20201030
  Transmission Date: 20210114
  Serious: Yes (Other)
  Sender: FDA-Public Use
  Company Number: None

PATIENT
  Age: 64 Year
  Sex: Female
  Weight: 48.6 kg

DRUGS (7)
  1. VIT.C/ D3/ MULTI [Concomitant]
  2. BRILINTA [Concomitant]
     Active Substance: TICAGRELOR
  3. TRASIEBA [Concomitant]
  4. BRILINTA [Suspect]
     Active Substance: TICAGRELOR
     Indication: PRODUCT USED FOR UNKNOWN INDICATION
     Dosage: ?          QUANTITY:1 TABLET(S);?
     Route: 048
     Dates: start: 20201026
  5. KORIG [Concomitant]
  6. HUMALOG [Concomitant]
     Active Substance: INSULIN LISPRO
  7. ASPIRIN. [Concomitant]
     Active Substance: ASPIRIN

REACTIONS (6)
  - Asthenia [None]
  - Feeling abnormal [None]
  - Dizziness [None]
  - Back pain [None]
  - Contusion [None]
  - Dyspnoea [None]

NARRATIVE: CASE EVENT DATE: 20201028
